FAERS Safety Report 12381585 (Version 1)
Quarter: 2016Q2

REPORT INFORMATION
  Report Type: Spontaneous
  Country: GB (occurrence: GB)
  Receive Date: 20160518
  Receipt Date: 20160518
  Transmission Date: 20160815
  Serious: Yes (Other)
  Sender: FDA-Public Use
  Company Number: GB-TEVA-659191ACC

PATIENT
  Age: 41 Year
  Sex: Female
  Weight: 76.2 kg

DRUGS (2)
  1. TOPIRAMATE. [Suspect]
     Active Substance: TOPIRAMATE
     Indication: MIGRAINE
     Dosage: 25MG RISING VERY SLOWLY TO 100MG
     Route: 048
     Dates: start: 20160126
  2. ORTHO EVRA [Concomitant]
     Active Substance: ETHINYL ESTRADIOL\NORELGESTROMIN

REACTIONS (10)
  - Speech disorder [Recovered/Resolved]
  - Abasia [Recovered/Resolved]
  - Depression suicidal [Recovered/Resolved]
  - Vertigo [Recovered/Resolved]
  - Haemorrhoids [Recovered/Resolved]
  - Agraphia [Recovered/Resolved]
  - Suicidal ideation [Recovered/Resolved]
  - Cough [Recovered/Resolved]
  - Syncope [Recovered/Resolved]
  - Dyspepsia [Recovered/Resolved]
